FAERS Safety Report 23452434 (Version 5)
Quarter: 2025Q1

REPORT INFORMATION
  Report Type: Spontaneous
  Country: US (occurrence: US)
  Receive Date: 20240129
  Receipt Date: 20250319
  Transmission Date: 20250409
  Serious: Yes (Other)
  Sender: BIOMARIN
  Company Number: US-SA-SAC20240120000428

PATIENT

DRUGS (5)
  1. LARONIDASE [Suspect]
     Active Substance: LARONIDASE
     Indication: Mucopolysaccharidosis I
     Dosage: 26.1 (UNITS NOT REPORTED) , QW
     Route: 042
     Dates: start: 20030716
  2. STOOL SOFTENER (DOCUSATE) [Concomitant]
     Active Substance: DOCUSATE
     Indication: Product used for unknown indication
  3. VITAMIN D NOS [Concomitant]
     Active Substance: CHOLECALCIFEROL\ERGOCALCIFEROL
     Indication: Product used for unknown indication
  4. COVID-19 vaccine [Concomitant]
     Indication: Product used for unknown indication
  5. INFLUENZA VIRUS VACCINE [Concomitant]
     Active Substance: INFLUENZA VIRUS VACCINE
     Indication: Product used for unknown indication

REACTIONS (25)
  - Corneal opacity [Unknown]
  - Visual impairment [Unknown]
  - Lethargy [Unknown]
  - Mitral valve disease [Unknown]
  - Hypophagia [Unknown]
  - Aortic valve disease [Unknown]
  - Spinal stenosis [Unknown]
  - Spinal pain [Unknown]
  - Joint contracture [Unknown]
  - Condition aggravated [Unknown]
  - Hypokinesia [Unknown]
  - Toe walking [Unknown]
  - Nail disorder [Unknown]
  - Mobility decreased [Unknown]
  - Arthropathy [Unknown]
  - Dry skin [Unknown]
  - Tooth abscess [Recovering/Resolving]
  - Back pain [Unknown]
  - Sleep disorder due to a general medical condition [Unknown]
  - Tooth disorder [Not Recovered/Not Resolved]
  - Tooth infection [Recovering/Resolving]
  - Headache [Recovered/Resolved]
  - Vomiting [Recovered/Resolved]
  - Arthralgia [Unknown]
  - Back pain [Unknown]

NARRATIVE: CASE EVENT DATE: 20240228
